FAERS Safety Report 20223000 (Version 1)
Quarter: 2021Q4

REPORT INFORMATION
  Report Type: Spontaneous
  Country: US (occurrence: US)
  Receive Date: 20211223
  Receipt Date: 20211223
  Transmission Date: 20220303
  Serious: No
  Sender: FDA-Public Use
  Company Number: US-PFIZER INC-202101265591

PATIENT
  Age: 56 Year
  Sex: Male
  Weight: 85.73 kg

DRUGS (3)
  1. CHANTIX [Suspect]
     Active Substance: VARENICLINE TARTRATE
     Dosage: 0.5 MG (STARTER)
  2. CHANTIX [Suspect]
     Active Substance: VARENICLINE TARTRATE
     Dosage: 1 MG (FOR 3 CONTINUING WEEKS)
  3. SEROQUEL [Concomitant]
     Active Substance: QUETIAPINE FUMARATE
     Indication: Mental disorder
     Dosage: UNK

REACTIONS (6)
  - Anxiety [Unknown]
  - Abdominal pain upper [Unknown]
  - Weight increased [Unknown]
  - Memory impairment [Unknown]
  - Flatulence [Unknown]
  - Recalled product administered [Unknown]
